FAERS Safety Report 4588492-9 (Version None)
Quarter: 2005Q1

REPORT INFORMATION
  Report Type: 
  Country: None (occurrence: None)
  Receive Date: 20050215
  Receipt Date: 20050215
  Transmission Date: 20050727
  Serious: No
  Sender: FDA-Public Use
  Company Number: None

PATIENT
  Sex: Male
  Weight: 95.2554 kg

DRUGS (5)
  1. FLOMAX [Suspect]
     Indication: IRIS DISORDER
     Dosage: 1 TAB   QD    ORAL
     Route: 048
  2. FLOMAX [Suspect]
     Indication: PROCEDURAL COMPLICATION
     Dosage: 1 TAB   QD    ORAL
     Route: 048
  3. HYDROCHLOROTHIAZIDE [Concomitant]
  4. LISINOPRIL [Concomitant]
  5. GLIPIZIDE [Concomitant]

REACTIONS (5)
  - DRUG INEFFECTIVE [None]
  - IRIDOCELE [None]
  - IRIS DISORDER [None]
  - MIOSIS [None]
  - PROCEDURAL COMPLICATION [None]
